FAERS Safety Report 9280056 (Version 1)
Quarter: 2013Q2

REPORT INFORMATION
  Report Type: Report from Study
  Country: BR (occurrence: BR)
  Receive Date: 20130509
  Receipt Date: 20130509
  Transmission Date: 20140414
  Serious: Yes (Hospitalization)
  Sender: FDA-Public Use
  Company Number: BR-BAYER-2013-056698

PATIENT
  Age: 29 Year
  Sex: Male

DRUGS (1)
  1. BETAFERON [Suspect]
     Indication: RELAPSING-REMITTING MULTIPLE SCLEROSIS
     Dosage: 1 ML, QOD
     Route: 058
     Dates: start: 20100223

REACTIONS (3)
  - Multiple sclerosis relapse [Recovering/Resolving]
  - Formication [Recovering/Resolving]
  - Musculoskeletal discomfort [Recovering/Resolving]
